FAERS Safety Report 4470612-8 (Version None)
Quarter: 2004Q4

REPORT INFORMATION
  Report Type: 
  Country: None (occurrence: None)
  Receive Date: 20041005
  Receipt Date: 20040922
  Transmission Date: 20050328
  Serious: Yes (Other)
  Sender: FDA-Public Use
  Company Number: 2004069676

PATIENT
  Sex: Male

DRUGS (1)
  1. ZELDOX [Suspect]
     Indication: EMOTIONAL DISORDER

REACTIONS (1)
  - PHYSICAL ASSAULT [None]
